FAERS Safety Report 25628403 (Version 1)
Quarter: 2025Q3

REPORT INFORMATION
  Report Type: Spontaneous
  Country: CN (occurrence: CN)
  Receive Date: 20250731
  Receipt Date: 20250731
  Transmission Date: 20251021
  Serious: Yes (Hospitalization)
  Sender: COHERUS
  Company Number: CN-SHANGHAI JUNSHI BIOSCIENCES CO., LTD.-CN2025015066

PATIENT

DRUGS (8)
  1. TORIPALIMAB [Suspect]
     Active Substance: TORIPALIMAB
     Indication: Oesophageal carcinoma
     Dosage: 240 MG, Q3W, D1, FIVE CYCLES OF ADMINISTRATION
     Route: 041
  2. TORIPALIMAB [Suspect]
     Active Substance: TORIPALIMAB
     Dosage: 240 MG, Q3W, D1
     Route: 041
     Dates: start: 20250710, end: 20250710
  3. GIMERACIL\OTERACIL\TEGAFUR [Suspect]
     Active Substance: GIMERACIL\OTERACIL POTASSIUM\TEGAFUR
     Indication: Oesophageal carcinoma
     Dosage: 40 MG IN THE MORNING, 60 MG IN THE EVENING, Q3W, D1 TO D14, FIVE CYCLES OF ADMINISTRATION
     Route: 048
  4. GIMERACIL\OTERACIL\TEGAFUR [Suspect]
     Active Substance: GIMERACIL\OTERACIL POTASSIUM\TEGAFUR
     Dosage: 40 MG IN THE MORNING, 60 MG IN THE EVENING, Q3W, D1 TO D14
     Route: 048
     Dates: start: 20250710, end: 20250724
  5. RANITIDINE BISMUTH CITRATE [Suspect]
     Active Substance: RANITIDINE BISMUTH CITRATE
     Indication: Oesophageal carcinoma
     Dosage: Q3W, D1, FIVE CYCLES OF ADMINISTRATION
     Route: 041
  6. RANITIDINE BISMUTH CITRATE [Suspect]
     Active Substance: RANITIDINE BISMUTH CITRATE
     Dosage: 300 MG, Q3W, D1
     Route: 041
     Dates: start: 20250710, end: 20250710
  7. SODIUM CHLORIDE [Concomitant]
     Active Substance: SODIUM CHLORIDE
     Indication: Medication dilution
     Dosage: 100 ML, Q3W, D1
     Route: 041
     Dates: start: 20250710, end: 20250710
  8. SODIUM CHLORIDE [Concomitant]
     Active Substance: SODIUM CHLORIDE
     Dosage: 60 ML, Q3W, D1
     Route: 041
     Dates: start: 20250710, end: 20250710

REACTIONS (1)
  - Myelosuppression [Recovering/Resolving]

NARRATIVE: CASE EVENT DATE: 20250717
